FAERS Safety Report 6558896-3 (Version None)
Quarter: 2010Q1

REPORT INFORMATION
  Report Type: 
  Country: None (occurrence: None)
  Receive Date: 20100129
  Receipt Date: 20100127
  Transmission Date: 20100710
  Serious: Yes (Hospitalization)
  Sender: FDA-Public Use
  Company Number: DE-WYE-G05414210

PATIENT
  Age: 3 Year
  Sex: Male

DRUGS (7)
  1. BENEFIX [Suspect]
     Indication: FACTOR IX DEFICIENCY
     Route: 042
     Dates: start: 20080419, end: 20080419
  2. BENEFIX [Suspect]
     Route: 042
     Dates: start: 20080420, end: 20080420
  3. BENEFIX [Suspect]
     Route: 042
     Dates: start: 20080422, end: 20080423
  4. BENEFIX [Suspect]
     Route: 042
     Dates: start: 20080424, end: 20080429
  5. BENEFIX [Suspect]
     Route: 042
     Dates: start: 20080430, end: 20080101
  6. BENEFIX [Suspect]
     Route: 042
     Dates: start: 20080101, end: 20081209
  7. BENEFIX [Suspect]
     Route: 042
     Dates: start: 20081210

REACTIONS (2)
  - EXTRADURAL HAEMATOMA [None]
  - SKULL FRACTURE [None]
